FAERS Safety Report 20910638 (Version 4)
Quarter: 2022Q4

REPORT INFORMATION
  Report Type: Spontaneous
  Country: JP (occurrence: JP)
  Receive Date: 20220603
  Receipt Date: 20221109
  Transmission Date: 20230112
  Serious: Yes (Life-Threatening, Hospitalization, Disabling)
  Sender: FDA-Public Use
  Company Number: JP-BAYER-2022A066783

PATIENT
  Age: 31 Year
  Sex: Male
  Weight: 136.4 kg

DRUGS (5)
  1. IOPROMIDE [Suspect]
     Active Substance: IOPROMIDE
     Indication: Angiogram cerebral
     Dosage: 100 ML
     Route: 041
     Dates: start: 20220425, end: 20220425
  2. CANAGLIFLOZIN [Concomitant]
     Active Substance: CANAGLIFLOZIN
  3. AMLODIPINE BESYLATE\VALSARTAN [Concomitant]
     Active Substance: AMLODIPINE BESYLATE\VALSARTAN
  4. TOCOPHERYL NICOTINATE [Concomitant]
     Active Substance: TOCOPHERYL NICOTINATE, D-.ALPHA.
  5. TRULICITY [Concomitant]
     Active Substance: DULAGLUTIDE

REACTIONS (1)
  - Anaphylactic reaction [None]

NARRATIVE: CASE EVENT DATE: 20220425
